FAERS Safety Report 17229206 (Version 1)
Quarter: 2019Q4

REPORT INFORMATION
  Report Type: Spontaneous
  Country: US (occurrence: US)
  Receive Date: 20191210
  Receipt Date: 20191210
  Transmission Date: 20200122
  Serious: No
  Sender: FDA-Public Use
  Company Number: None

PATIENT
  Age: 78 Year
  Sex: Female

DRUGS (1)
  1. IMATINIB 400MG  TAB (X30) [Suspect]
     Active Substance: IMATINIB
     Route: 048
     Dates: start: 201708, end: 20191115

REACTIONS (2)
  - Treatment failure [None]
  - Therapy change [None]

NARRATIVE: CASE EVENT DATE: 20191210
